FAERS Safety Report 22343088 (Version 2)
Quarter: 2023Q2

REPORT INFORMATION
  Report Type: Spontaneous
  Country: FR (occurrence: FR)
  Receive Date: 20230519
  Receipt Date: 20230609
  Transmission Date: 20230722
  Serious: Yes (Hospitalization, Other)
  Sender: FDA-Public Use
  Company Number: FR-ALIMERA SCIENCES EUROPE LIMITED-FR-A16013-23-000121

PATIENT
  Age: 67 Year
  Sex: Female
  Weight: 105 kg

DRUGS (1)
  1. ILUVIEN [Suspect]
     Active Substance: FLUOCINOLONE ACETONIDE
     Indication: Chorioretinitis
     Dosage: 0.25 MICROGRAM, QD - RIGHT EYE
     Route: 031
     Dates: start: 20230425

REACTIONS (5)
  - Blindness [Unknown]
  - Retinal detachment [Unknown]
  - Endophthalmitis [Unknown]
  - Eye pain [Unknown]
  - Retinal operation [Recovered/Resolved]

NARRATIVE: CASE EVENT DATE: 20230426
